FAERS Safety Report 25282145 (Version 2)
Quarter: 2025Q2

REPORT INFORMATION
  Report Type: Spontaneous
  Country: US (occurrence: US)
  Receive Date: 20250508
  Receipt Date: 20250526
  Transmission Date: 20250717
  Serious: No
  Sender: ABBVIE
  Company Number: US-ABBVIE-6256251

PATIENT
  Sex: Female
  Weight: 46.719 kg

DRUGS (5)
  1. ESTRACE [Suspect]
     Active Substance: ESTRADIOL
     Indication: Vaginal disorder
     Route: 067
     Dates: start: 200801, end: 2009
  2. ESTRACE [Suspect]
     Active Substance: ESTRADIOL
     Indication: Product used for unknown indication
     Route: 065
  3. ESTRACE [Suspect]
     Active Substance: ESTRADIOL
     Indication: Vulvovaginal dryness
     Route: 067
     Dates: start: 2009
  4. ESTRACE [Suspect]
     Active Substance: ESTRADIOL
     Indication: Pelvic floor repair
     Route: 067
  5. MINIVELLE [Concomitant]
     Active Substance: ESTRADIOL
     Indication: Product used for unknown indication
     Route: 065

REACTIONS (10)
  - Rash [Recovered/Resolved]
  - Joint swelling [Recovered/Resolved]
  - Serum sickness [Unknown]
  - Hypersensitivity [Recovered/Resolved]
  - Gait disturbance [Recovered/Resolved]
  - Bacterial vulvovaginitis [Recovered/Resolved]
  - Joint range of motion decreased [Recovered/Resolved]
  - Erythema [Recovered/Resolved]
  - Burning sensation [Recovered/Resolved]
  - Arthralgia [Recovered/Resolved]

NARRATIVE: CASE EVENT DATE: 20070101
